FAERS Safety Report 7618944-6 (Version None)
Quarter: 2011Q3

REPORT INFORMATION
  Report Type: 
  Country: None (occurrence: None)
  Receive Date: 20110718
  Receipt Date: 20110321
  Transmission Date: 20111222
  Serious: Yes (Hospitalization)
  Sender: FDA-Public Use
  Company Number: FR-BAYER-2011-049942

PATIENT
  Age: 41 Year
  Sex: Female

DRUGS (3)
  1. NAPROXEN SODIUM [Suspect]
     Indication: PAIN
     Dosage: UNK
     Route: 048
     Dates: start: 20110126, end: 20110127
  2. MINOCYCLINE HYDROCHLORIDE [Suspect]
     Indication: ACNE
     Dosage: 1 DF, QD
     Route: 048
     Dates: start: 20110121, end: 20110125
  3. ACETAMINOPHEN [Suspect]
     Dosage: 500 MG, UNK

REACTIONS (5)
  - ARTHRALGIA [None]
  - RASH PAPULAR [None]
  - HEADACHE [None]
  - ERYTHEMA [None]
  - PYREXIA [None]
